FAERS Safety Report 25287484 (Version 2)
Quarter: 2025Q3

REPORT INFORMATION
  Report Type: Spontaneous
  Country: PR (occurrence: PR)
  Receive Date: 20250509
  Receipt Date: 20250909
  Transmission Date: 20251021
  Serious: No
  Sender: BRISTOL-MYERS SQUIBB COMPANY
  Company Number: PR-BRISTOL-MYERS SQUIBB COMPANY-2025-067382

PATIENT
  Age: 80 Year
  Sex: Female
  Weight: 64.86 kg

DRUGS (3)
  1. REVLIMID [Suspect]
     Active Substance: LENALIDOMIDE
     Indication: Plasma cell myeloma
     Dates: start: 202504
  2. REVLIMID [Suspect]
     Active Substance: LENALIDOMIDE
     Dates: start: 202504
  3. REVLIMID [Suspect]
     Active Substance: LENALIDOMIDE
     Dosage: TAKE 1 CAP DAILY FOR 21 DAYS EVERY
     Dates: start: 202503, end: 20250801

REACTIONS (5)
  - Pruritus [Unknown]
  - Diarrhoea [Recovered/Resolved]
  - Decreased appetite [Recovered/Resolved]
  - Tremor [Recovered/Resolved]
  - Ageusia [Recovered/Resolved]

NARRATIVE: CASE EVENT DATE: 20250401
